FAERS Safety Report 8279291-5 (Version None)
Quarter: 2012Q2

REPORT INFORMATION
  Report Type: 
  Country: None (occurrence: None)
  Receive Date: 20120412
  Receipt Date: 20120328
  Transmission Date: 20120825
  Serious: Yes (Other)
  Sender: FDA-Public Use
  Company Number: CHPA2012US006248

PATIENT
  Sex: Male

DRUGS (2)
  1. DRUG USED IN DIABETES [Concomitant]
     Indication: DIABETES MELLITUS
     Dosage: UNK
  2. EXCEDRIN EXTRA STRENGTH TABLETS [Suspect]
     Indication: HEADACHE
     Dosage: 1 DF, QD
     Route: 048
     Dates: end: 20120101

REACTIONS (5)
  - VISION BLURRED [None]
  - UNDERDOSE [None]
  - BACTERIAL INFECTION [None]
  - ABNORMAL SENSATION IN EYE [None]
  - INCORRECT DRUG ADMINISTRATION DURATION [None]
